FAERS Safety Report 9902812 (Version 1)
Quarter: 2014Q1

REPORT INFORMATION
  Report Type: Spontaneous
  Country: US (occurrence: US)
  Receive Date: 20140217
  Receipt Date: 20140217
  Transmission Date: 20141002
  Serious: Yes (Death, Other)
  Sender: FDA-Public Use
  Company Number: CHPA2014US002598

PATIENT
  Sex: 0

DRUGS (1)
  1. ACETAMINOPHEN (PARACETAMOL) [Suspect]
     Route: 064

REACTIONS (9)
  - Brain injury [Fatal]
  - Hydrocephalus [Fatal]
  - Brain herniation [Fatal]
  - Brain compression [Fatal]
  - Hepatomegaly [Fatal]
  - Ascites [Fatal]
  - Pericardial effusion [Fatal]
  - Cerebral ventricle dilatation [Fatal]
  - Foetal exposure during pregnancy [Unknown]
